FAERS Safety Report 11057109 (Version 2)
Quarter: 2015Q2

REPORT INFORMATION
  Report Type: Report from Study
  Country: NL (occurrence: NL)
  Receive Date: 20150422
  Receipt Date: 20150522
  Transmission Date: 20150821
  Serious: Yes (Hospitalization)
  Sender: FDA-Public Use
  Company Number: NL-INCYTE CORPORATION-2015IN001635

PATIENT
  Age: 76 Year
  Sex: Female
  Weight: 65 kg

DRUGS (1)
  1. JAKAFI [Suspect]
     Active Substance: RUXOLITINIB
     Indication: MYELOFIBROSIS
     Dosage: 20 MG, BID
     Route: 048
     Dates: start: 20130131

REACTIONS (10)
  - Abdominal distension [Unknown]
  - Dyspnoea [Recovered/Resolved]
  - Palpitations [Unknown]
  - Abdominal pain [Unknown]
  - Pyrexia [Recovering/Resolving]
  - Chest pain [Unknown]
  - Dyspnoea [Recovering/Resolving]
  - Hallucination [Recovered/Resolved]
  - Candida infection [Recovered/Resolved]
  - Cough [Recovering/Resolving]

NARRATIVE: CASE EVENT DATE: 20150226
